FAERS Safety Report 11217077 (Version 1)
Quarter: 2015Q2

REPORT INFORMATION
  Report Type: Spontaneous
  Country: IN (occurrence: IN)
  Receive Date: 20150624
  Receipt Date: 20150624
  Transmission Date: 20150821
  Serious: Yes (Hospitalization)
  Sender: FDA-Public Use
  Company Number: IN-MERCK-1506IND011391

PATIENT
  Age: 53 Year
  Sex: Male
  Weight: 80 kg

DRUGS (2)
  1. JANUVIA [Suspect]
     Active Substance: SITAGLIPTIN PHOSPHATE
     Indication: DIABETES MELLITUS
     Dosage: 1 TABLET/DAY
     Route: 048
  2. JANUMET [Suspect]
     Active Substance: METFORMIN HYDROCHLORIDE\SITAGLIPTIN PHOSPHATE
     Indication: DIABETES MELLITUS
     Dosage: 1 TABLET/DAY
     Route: 048

REACTIONS (2)
  - Overdose [Unknown]
  - Cardiac disorder [Recovering/Resolving]

NARRATIVE: CASE EVENT DATE: 20150608
